FAERS Safety Report 12110741 (Version 7)
Quarter: 2017Q2

REPORT INFORMATION
  Report Type: Spontaneous
  Country: AU (occurrence: AU)
  Receive Date: 20160224
  Receipt Date: 20170522
  Transmission Date: 20170829
  Serious: Yes (Death, Other)
  Sender: FDA-Public Use
  Company Number: AU-SA-2016SA035585

PATIENT
  Age: 31 Year
  Sex: Male

DRUGS (3)
  1. OXALIPLATIN. [Suspect]
     Active Substance: OXALIPLATIN
     Indication: PANCREATIC CARCINOMA METASTATIC
     Route: 065
  2. FLUOROURACIL. [Suspect]
     Active Substance: FLUOROURACIL
     Indication: PANCREATIC CARCINOMA METASTATIC
     Route: 065
  3. FOLINIC ACID [Suspect]
     Active Substance: LEUCOVORIN
     Indication: PANCREATIC CARCINOMA METASTATIC
     Route: 065

REACTIONS (6)
  - Portal venous gas [Fatal]
  - Abdominal distension [Unknown]
  - Intestinal ischaemia [Fatal]
  - Pneumatosis intestinalis [Fatal]
  - Abdominal sepsis [Fatal]
  - Abdominal pain [Unknown]
